FAERS Safety Report 18697626 (Version 2)
Quarter: 2021Q1

REPORT INFORMATION
  Report Type: Spontaneous
  Country: US (occurrence: US)
  Receive Date: 20210105
  Receipt Date: 20210223
  Transmission Date: 20210419
  Serious: No
  Sender: FDA-Public Use
  Company Number: US-TAKEDA-2020TUS060984

PATIENT
  Sex: Female

DRUGS (9)
  1. NINLARO [Suspect]
     Active Substance: IXAZOMIB CITRATE
     Indication: PLASMA CELL MYELOMA
     Dosage: 3 MILLIGRAM
     Route: 048
     Dates: start: 20201002
  2. VALACYCLOVIR [Concomitant]
     Active Substance: VALACYCLOVIR HYDROCHLORIDE
     Dosage: UNK
  3. FUROSEMIDE. [Concomitant]
     Active Substance: FUROSEMIDE
     Dosage: UNK
  4. PANTOPRAZOLE [Concomitant]
     Active Substance: PANTOPRAZOLE
     Dosage: UNK
  5. DEXAMETHASONE. [Concomitant]
     Active Substance: DEXAMETHASONE
     Dosage: UNK
  6. DICOFENAC [Concomitant]
     Dosage: UNK
  7. FOLIC ACID. [Concomitant]
     Active Substance: FOLIC ACID
     Dosage: UNK
  8. ROSUVASTATIN. [Concomitant]
     Active Substance: ROSUVASTATIN
     Dosage: UNK
  9. LOSARTAN POTASSSIUM [Concomitant]
     Active Substance: LOSARTAN POTASSIUM
     Dosage: UNK

REACTIONS (4)
  - Dry mouth [Not Recovered/Not Resolved]
  - Constipation [Unknown]
  - Acne [Unknown]
  - Diarrhoea [Unknown]
